FAERS Safety Report 13336990 (Version 5)
Quarter: 2018Q1

REPORT INFORMATION
  Report Type: Spontaneous
  Country: FR (occurrence: FR)
  Receive Date: 20170314
  Receipt Date: 20180220
  Transmission Date: 20180508
  Serious: Yes (Congenital Anomaly, Other)
  Sender: FDA-Public Use
  Company Number: FR-ABBVIE-17P-056-1906174-00

PATIENT
  Sex: Female

DRUGS (2)
  1. DEPAKINE [Suspect]
     Active Substance: VALPROATE SODIUM
     Indication: MATERNAL EXPOSURE TIMING UNSPECIFIED
     Route: 064
  2. DEPAKINE CHRONO [Suspect]
     Active Substance: VALPROATE SODIUM
     Indication: MATERNAL EXPOSURE TIMING UNSPECIFIED
     Route: 064

REACTIONS (25)
  - Talipes [Unknown]
  - Anomaly of external ear congenital [Unknown]
  - Nystagmus [Unknown]
  - Apraxia [Unknown]
  - Laryngitis [Unknown]
  - Intellectual disability [Unknown]
  - Disturbance in attention [Unknown]
  - Low set ears [Unknown]
  - Hypertonia [Unknown]
  - Abnormal behaviour [Unknown]
  - Astigmatism [Unknown]
  - Foetal exposure during pregnancy [Unknown]
  - Strabismus [Unknown]
  - Otitis media [Unknown]
  - Hypertelorism of orbit [Unknown]
  - Congenital nose malformation [Unknown]
  - Muscle tone disorder [Unknown]
  - Autism spectrum disorder [Unknown]
  - Head injury [Unknown]
  - Dysmorphism [Unknown]
  - Gait disturbance [Unknown]
  - Speech disorder developmental [Unknown]
  - Cognitive disorder [Unknown]
  - Atypical benign partial epilepsy [Unknown]
  - Hypotonia [Unknown]

NARRATIVE: CASE EVENT DATE: 20041102
